FAERS Safety Report 24242823 (Version 3)
Quarter: 2024Q4

REPORT INFORMATION
  Report Type: Report from Study
  Country: IN (occurrence: IN)
  Receive Date: 20240823
  Receipt Date: 20241014
  Transmission Date: 20250114
  Serious: Yes (Hospitalization)
  Sender: ROCHE
  Company Number: IN-ROCHE-10000059419

PATIENT
  Age: 84 Year
  Sex: Male
  Weight: 56.6 kg

DRUGS (1)
  1. TECENTRIQ [Suspect]
     Active Substance: ATEZOLIZUMAB
     Indication: Hepatocellular carcinoma
     Route: 042
     Dates: start: 20240525

REACTIONS (8)
  - Malaise [Unknown]
  - Dyspnoea [Unknown]
  - Speech disorder [Unknown]
  - Fatigue [Unknown]
  - Asthenia [Unknown]
  - Illness [Unknown]
  - Ill-defined disorder [Unknown]
  - Gait inability [Unknown]
